FAERS Safety Report 13802163 (Version 1)
Quarter: 2017Q3

REPORT INFORMATION
  Report Type: Spontaneous
  Country: None (occurrence: US)
  Receive Date: 20170727
  Receipt Date: 20170727
  Transmission Date: 20171127
  Serious: No
  Sender: FDA-Public Use
  Company Number: US-OSMOTICA_PHARMACEUTICAL_US_LLC-POI0573201700026

PATIENT
  Age: 57 Year
  Sex: Female
  Weight: 53.12 kg

DRUGS (2)
  1. DIVIGEL [Suspect]
     Active Substance: ESTRADIOL
     Indication: NIGHT SWEATS
     Route: 062
     Dates: start: 201702
  2. DIVIGEL [Suspect]
     Active Substance: ESTRADIOL
     Indication: METRORRHAGIA

REACTIONS (4)
  - Menorrhagia [Not Recovered/Not Resolved]
  - Night sweats [Not Recovered/Not Resolved]
  - Metrorrhagia [Not Recovered/Not Resolved]
  - Insomnia [Not Recovered/Not Resolved]

NARRATIVE: CASE EVENT DATE: 201702
